FAERS Safety Report 7914867 (Version 4)
Quarter: 2014Q1

REPORT INFORMATION
  Report Type: Report from Study
  Country: CA (occurrence: CA)
  Receive Date: 20110426
  Receipt Date: 20140204
  Transmission Date: 20141002
  Serious: Yes (Other)
  Sender: FDA-Public Use
  Company Number: PHHY2011CA32898

PATIENT
  Age: 79 Year
  Sex: Female

DRUGS (6)
  1. ACLASTA [Suspect]
     Indication: OSTEOPOROSIS POSTMENOPAUSAL
     Dosage: 5 MG, UNK
     Route: 042
     Dates: start: 20100226
  2. ACLASTA [Suspect]
     Dosage: 5 MG, UNK
     Route: 042
     Dates: start: 20110416
  3. ACLASTA [Suspect]
     Dosage: 5 MG, UNK
     Route: 042
     Dates: start: 20120417
  4. ACLASTA [Suspect]
     Dosage: 5 MG, UNK
     Route: 042
     Dates: start: 20130425
  5. CALCIUM [Concomitant]
     Dosage: UKN
  6. VITAMIN D [Concomitant]
     Dosage: UKN

REACTIONS (4)
  - Stress cardiomyopathy [Unknown]
  - Glomerular filtration rate decreased [Unknown]
  - Creatinine renal clearance decreased [Unknown]
  - Blood creatinine abnormal [Unknown]
